FAERS Safety Report 16703457 (Version 5)
Quarter: 2020Q1

REPORT INFORMATION
  Report Type: Spontaneous
  Country: US (occurrence: US)
  Receive Date: 20190814
  Receipt Date: 20200229
  Transmission Date: 20200409
  Serious: No
  Sender: FDA-Public Use
  Company Number: US-009507513-1908USA005591

PATIENT
  Age: 24 Year
  Sex: Female
  Weight: 56.87 kg

DRUGS (3)
  1. NEXPLANON [Suspect]
     Active Substance: ETONOGESTREL
     Dosage: UNK
     Route: 059
     Dates: start: 20190318, end: 20190909
  2. AMITIZA [Concomitant]
     Active Substance: LUBIPROSTONE
     Dosage: UNK
  3. NEXPLANON [Suspect]
     Active Substance: ETONOGESTREL
     Indication: CONTRACEPTION
     Dosage: UNK
     Route: 059
     Dates: start: 2016, end: 20190318

REACTIONS (9)
  - Implant site hypoaesthesia [Unknown]
  - Pain [Unknown]
  - Discomfort [Unknown]
  - Limb discomfort [Recovered/Resolved]
  - Pain in extremity [Unknown]
  - Implant site hypersensitivity [Unknown]
  - Paraesthesia [Unknown]
  - Complication associated with device [Recovered/Resolved]
  - Implant site pain [Unknown]

NARRATIVE: CASE EVENT DATE: 2019
